FAERS Safety Report 19711804 (Version 3)
Quarter: 2021Q3

REPORT INFORMATION
  Report Type: Report from Study
  Country: CA (occurrence: CA)
  Receive Date: 20210817
  Receipt Date: 20210826
  Transmission Date: 20211014
  Serious: Yes (Other)
  Sender: FDA-Public Use
  Company Number: CA-BIOGEN-2021BI01038680

PATIENT
  Age: 46 Year
  Sex: Female

DRUGS (2)
  1. TYSABRI [Suspect]
     Active Substance: NATALIZUMAB
     Dosage: EVERY 5?6 WEEKS
     Route: 042
     Dates: start: 20200124
  2. TYSABRI [Suspect]
     Active Substance: NATALIZUMAB
     Indication: MULTIPLE SCLEROSIS
     Route: 042
     Dates: start: 20131120, end: 20191212

REACTIONS (7)
  - Nausea [Unknown]
  - Prescribed underdose [Not Recovered/Not Resolved]
  - Renal pain [Unknown]
  - Vomiting [Unknown]
  - Diabetes mellitus [Unknown]
  - Menstruation delayed [Unknown]
  - Abdominal pain [Unknown]

NARRATIVE: CASE EVENT DATE: 20200124
